FAERS Safety Report 9959726 (Version 1)
Quarter: 2014Q1

REPORT INFORMATION
  Report Type: Report from Study
  Country: US (occurrence: US)
  Receive Date: 20140305
  Receipt Date: 20140305
  Transmission Date: 20141002
  Serious: No
  Sender: FDA-Public Use
  Company Number: US-ABBVIE-13P-163-1105940-00

PATIENT
  Age: 22 Year
  Sex: Female

DRUGS (8)
  1. HUMIRA [Suspect]
     Indication: CROHN^S DISEASE
     Dates: start: 20130110
  2. ENTOCORT [Concomitant]
     Indication: CROHN^S DISEASE
     Dosage: 3 MG 3 TABLETS DAILY
     Route: 048
  3. LEXAPRO [Concomitant]
     Indication: ANXIETY
     Dosage: 10 MG DAILY
     Route: 048
  4. LEXAPRO [Concomitant]
     Indication: DEPRESSION
  5. IRON [Concomitant]
     Indication: ANAEMIA
     Dosage: DAILY
     Route: 048
  6. BIRTH CONTROL PILL [Concomitant]
     Indication: CONTRACEPTION
     Dosage: DAILY
     Route: 048
  7. PROTONIX [Concomitant]
     Indication: GASTROOESOPHAGEAL REFLUX DISEASE
     Dosage: DAILY
     Route: 048
  8. PROTONIX [Concomitant]
     Indication: CROHN^S DISEASE

REACTIONS (4)
  - Injection site erythema [Not Recovered/Not Resolved]
  - Injection site pain [Not Recovered/Not Resolved]
  - Injection site erythema [Unknown]
  - Injection site warmth [Unknown]
